FAERS Safety Report 7147836-4 (Version None)
Quarter: 2010Q4

REPORT INFORMATION
  Report Type: 
  Country: None (occurrence: None)
  Receive Date: 20101207
  Receipt Date: 20101207
  Transmission Date: 20110411
  Serious: Yes (Hospitalization)
  Sender: FDA-Public Use
  Company Number: None

PATIENT
  Age: 77 Year
  Sex: Male
  Weight: 78.0187 kg

DRUGS (5)
  1. METHOTREXATE [Suspect]
     Dosage: AS ABOVE
     Dates: start: 20101118
  2. VINBLASTINE 3 MG/M2 [Suspect]
     Indication: BLADDER CANCER
     Dosage: AS ABOVE
     Dates: start: 20101118
  3. DOXORUBICIN 30 MG/M2 [Suspect]
     Dates: start: 20101119
  4. CISPLATIN [Suspect]
     Dates: start: 20101119
  5. NEULASTA [Suspect]
     Dates: start: 20101119

REACTIONS (3)
  - HAEMATURIA [None]
  - HAEMOGLOBIN DECREASED [None]
  - URINARY RETENTION [None]
